FAERS Safety Report 9612020 (Version 1)
Quarter: 2013Q4

REPORT INFORMATION
  Report Type: Spontaneous
  Country: GB (occurrence: GB)
  Receive Date: 20131010
  Receipt Date: 20131010
  Transmission Date: 20140711
  Serious: Yes (Disabling)
  Sender: FDA-Public Use
  Company Number: GB-TEVA-436534ISR

PATIENT
  Age: 54 Year
  Sex: Male
  Weight: 85.4 kg

DRUGS (10)
  1. ALENDRONIC ACID [Suspect]
     Route: 048
     Dates: start: 201112, end: 201307
  2. ASPIRIN [Concomitant]
  3. CLOPIDOGREL [Concomitant]
  4. OMEPRAZOLE [Concomitant]
  5. ATORVASTATIN [Concomitant]
  6. PREDNISOLONE [Concomitant]
  7. PARACETAMOL [Concomitant]
  8. MYCOPHENOLATE MOFETIL [Concomitant]
  9. BISOPROLOL [Concomitant]
  10. CO-TRIMOXAZOLE [Concomitant]

REACTIONS (1)
  - Visual impairment [Recovered/Resolved]
